FAERS Safety Report 4952076-0 (Version None)
Quarter: 2006Q1

REPORT INFORMATION
  Report Type: 
  Country: None (occurrence: None)
  Receive Date: 20060323
  Receipt Date: 20060313
  Transmission Date: 20060701
  Serious: Yes (Other)
  Sender: FDA-Public Use
  Company Number: US-SANOFI-SYNTHELABO-A03200601535

PATIENT
  Sex: Male

DRUGS (1)
  1. ELIGARD [Suspect]
     Dosage: UNK
     Route: 058

REACTIONS (1)
  - FRACTURE [None]
